FAERS Safety Report 5262910-5 (Version None)
Quarter: 2007Q1

REPORT INFORMATION
  Report Type: 
  Country: None (occurrence: None)
  Receive Date: 20070312
  Receipt Date: 20070228
  Transmission Date: 20070707
  Serious: Yes (Hospitalization)
  Sender: FDA-Public Use
  Company Number: 2006UW27664

PATIENT
  Sex: Male
  Weight: 136.4 kg

DRUGS (8)
  1. SEROQUEL [Suspect]
     Indication: BIPOLAR DISORDER
     Route: 048
     Dates: start: 20021101
  2. SEROQUEL [Suspect]
     Indication: SCHIZOPHRENIA
     Route: 048
     Dates: start: 20021101
  3. SEROQUEL [Suspect]
     Indication: DEPRESSION
     Route: 048
     Dates: start: 20021101
  4. RISPERDAL [Suspect]
     Dates: start: 20040101
  5. CLOZARIL [Concomitant]
     Dates: start: 20040101
  6. GEODON [Concomitant]
     Dates: start: 20040101
  7. CELEXA [Concomitant]
  8. CITAPRIL [Concomitant]

REACTIONS (3)
  - DIABETES MELLITUS [None]
  - ILL-DEFINED DISORDER [None]
  - SCHIZOPHRENIA [None]
